FAERS Safety Report 8130345-3 (Version None)
Quarter: 2012Q1

REPORT INFORMATION
  Report Type: 
  Country: None (occurrence: None)
  Receive Date: 20120210
  Receipt Date: 20120206
  Transmission Date: 20120608
  Serious: Yes (Hospitalization)
  Sender: FDA-Public Use
  Company Number: PHHY2012IT010385

PATIENT
  Sex: Male

DRUGS (4)
  1. AFINITOR [Suspect]
     Indication: RENAL CELL CARCINOMA
     Dosage: 10 MG, DAILY
     Route: 048
     Dates: start: 20110629, end: 20120125
  2. RANITIDINE [Concomitant]
     Dosage: 300 MG, UNK
     Route: 048
     Dates: start: 20110601
  3. PREDNISONE TAB [Concomitant]
     Dosage: 12.5 MG, DAILY
     Route: 048
     Dates: start: 20111228, end: 20120125
  4. LEVOTHYROXINE SODIUM [Concomitant]
     Dosage: 225 UG, DAILY
     Route: 048
     Dates: start: 20111220

REACTIONS (5)
  - HAEMATEMESIS [None]
  - HAEMOGLOBIN DECREASED [None]
  - PYREXIA [None]
  - GASTROINTESTINAL HAEMORRHAGE [None]
  - GASTROINTESTINAL OEDEMA [None]
